FAERS Safety Report 7664694-X (Version None)
Quarter: 2011Q3

REPORT INFORMATION
  Report Type: 
  Country: None (occurrence: None)
  Receive Date: 20110806
  Receipt Date: 20110110
  Transmission Date: 20111222
  Serious: No
  Sender: FDA-Public Use
  Company Number: US-ABBOTT-11P-163-0696268-00

PATIENT
  Sex: Male
  Weight: 107.6 kg

DRUGS (9)
  1. MIRALAX [Concomitant]
     Indication: CONSTIPATION
  2. HYTRIN [Concomitant]
     Indication: PRODUCT USED FOR UNKNOWN INDICATION
     Route: 048
  3. LABETALOL HCL [Concomitant]
     Indication: PRODUCT USED FOR UNKNOWN INDICATION
     Route: 048
  4. NIASPAN [Suspect]
     Indication: DYSLIPIDAEMIA
     Dosage: NIGHTLY
     Route: 048
  5. SIMVASTATIN [Concomitant]
     Indication: PRODUCT USED FOR UNKNOWN INDICATION
     Route: 048
  6. VICODIN [Suspect]
     Indication: PAIN
     Route: 048
  7. GABAPENTIN [Concomitant]
     Indication: PAIN
     Route: 048
  8. DIOVAN HCT [Concomitant]
     Indication: PRODUCT USED FOR UNKNOWN INDICATION
     Route: 048
  9. LISINOPRIL [Concomitant]
     Indication: PRODUCT USED FOR UNKNOWN INDICATION
     Route: 048

REACTIONS (1)
  - CONSTIPATION [None]
